FAERS Safety Report 18340374 (Version 2)
Quarter: 2023Q2

REPORT INFORMATION
  Report Type: Other
  Country: CA (occurrence: CA)
  Receive Date: 20201002
  Receipt Date: 20230621
  Transmission Date: 20230721
  Serious: Yes (Other)
  Sender: FDA-Public Use
  Company Number: CA-DUCHESNAY-2020CA000096

PATIENT

DRUGS (1)
  1. DICLECTIN [Suspect]
     Active Substance: DOXYLAMINE SUCCINATE\PYRIDOXINE HYDROCHLORIDE
     Indication: Morning sickness
     Dosage: TOOK 1 DOSE FRIDAY HS, SATURDAY NOON, SATURDAY HS, SUNDAY AM
     Route: 048
     Dates: start: 2019

REACTIONS (4)
  - Dysstasia [Unknown]
  - Abdominal pain upper [Unknown]
  - Pain [Unknown]
  - Dyspnoea [Unknown]

NARRATIVE: CASE EVENT DATE: 20190101
